FAERS Safety Report 5744986-1 (Version None)
Quarter: 2008Q2

REPORT INFORMATION
  Report Type: 
  Country: None (occurrence: None)
  Receive Date: 20080521
  Receipt Date: 20080430
  Transmission Date: 20081010
  Serious: Yes (Other)
  Sender: FDA-Public Use
  Company Number: JP-BAYER-200817937GPV

PATIENT
  Age: 77 Year
  Sex: Male
  Weight: 51 kg

DRUGS (14)
  1. IOPROMIDE [Suspect]
     Indication: CONTRAST MEDIA REACTION
  2. INSULIN [Concomitant]
     Indication: DIABETES MELLITUS
     Route: 058
  3. HEPARIN [Concomitant]
     Indication: ANTICOAGULANT THERAPY
     Route: 065
  4. MIDAZOLAM HCL [Concomitant]
     Indication: INDUCTION OF ANAESTHESIA
     Dosage: AS USED: 3 MG
     Route: 065
  5. FENTANYL [Concomitant]
     Indication: INDUCTION OF ANAESTHESIA
     Dosage: AS USED: 400 ?G
     Route: 065
  6. SEVOFLURANE [Concomitant]
     Indication: INDUCTION OF ANAESTHESIA
     Route: 065
  7. SEVOFLURANE [Concomitant]
     Route: 065
  8. VECURONIUM BROMIDE [Concomitant]
     Indication: INDUCTION OF ANAESTHESIA
     Dosage: AS USED: 5 MG
     Route: 065
  9. NICORANDIL [Concomitant]
     Indication: CARDIOVASCULAR EVENT PROPHYLAXIS
     Route: 065
  10. ISOSORBIDE DINITRATE [Concomitant]
     Indication: CARDIOVASCULAR EVENT PROPHYLAXIS
     Route: 065
  11. ISOSORBIDE DINITRATE [Concomitant]
     Route: 065
  12. WARFARIN POTASSIUM [Concomitant]
     Indication: ANTICOAGULANT THERAPY
     Route: 065
  13. IOPAMIDOL-300 [Concomitant]
     Indication: CONTRAST MEDIA REACTION
     Route: 065
  14. NITROGLYCERIN [Concomitant]
     Indication: CARDIOVASCULAR EVENT PROPHYLAXIS
     Route: 065

REACTIONS (2)
  - ELECTROCARDIOGRAM ST SEGMENT DEPRESSION [None]
  - MYOCARDIAL ISCHAEMIA [None]
